FAERS Safety Report 21178231 (Version 2)
Quarter: 2023Q1

REPORT INFORMATION
  Report Type: Spontaneous
  Country: SA (occurrence: SA)
  Receive Date: 20220805
  Receipt Date: 20230113
  Transmission Date: 20230417
  Serious: Yes (Hospitalization, Other)
  Sender: FDA-Public Use
  Company Number: SA-STRIDES ARCOLAB LIMITED-2022SP009816

PATIENT
  Age: 12 Year
  Sex: Male

DRUGS (20)
  1. CARBOPLATIN [Suspect]
     Active Substance: CARBOPLATIN
     Indication: Pineal neoplasm
     Dosage: UNK
     Route: 065
  2. CARBOPLATIN [Suspect]
     Active Substance: CARBOPLATIN
     Indication: Germ cell neoplasm
  3. CARBOPLATIN [Suspect]
     Active Substance: CARBOPLATIN
     Indication: Neuroendocrine tumour
  4. CARBOPLATIN [Suspect]
     Active Substance: CARBOPLATIN
     Indication: Germ cell cancer
  5. ETOPOSIDE [Suspect]
     Active Substance: ETOPOSIDE
     Indication: Pineal neoplasm
     Dosage: UNK
     Route: 065
  6. ETOPOSIDE [Suspect]
     Active Substance: ETOPOSIDE
     Indication: Germ cell neoplasm
     Dosage: UNK UNK, CYCLICAL (3RD CYCLE)
     Route: 065
  7. ETOPOSIDE [Suspect]
     Active Substance: ETOPOSIDE
     Indication: Neuroendocrine tumour
     Dosage: UNK UNK, CYCLICAL (TWO CONSOLIDATION CYCLES)
     Route: 065
  8. ETOPOSIDE [Suspect]
     Active Substance: ETOPOSIDE
     Indication: Germ cell cancer
  9. THIOTEPA [Suspect]
     Active Substance: THIOTEPA
     Indication: Pineal neoplasm
     Dosage: UNK UNK, CYCLICAL (TWO CONSOLIDATION CYCLES)
     Route: 065
  10. THIOTEPA [Suspect]
     Active Substance: THIOTEPA
     Indication: Germ cell neoplasm
  11. THIOTEPA [Suspect]
     Active Substance: THIOTEPA
     Indication: Neuroendocrine tumour
  12. THIOTEPA [Suspect]
     Active Substance: THIOTEPA
     Indication: Germ cell cancer
  13. VINBLASTINE [Suspect]
     Active Substance: VINBLASTINE
     Indication: Pineal neoplasm
     Dosage: UNK UNK, CYCLICAL (3RD CYCLE)
     Route: 065
  14. VINBLASTINE [Suspect]
     Active Substance: VINBLASTINE
     Indication: Germ cell neoplasm
     Route: 065
  15. VINBLASTINE [Suspect]
     Active Substance: VINBLASTINE
     Indication: Neuroendocrine tumour
  16. VINBLASTINE [Suspect]
     Active Substance: VINBLASTINE
     Indication: Germ cell cancer
  17. BLEOMYCIN [Suspect]
     Active Substance: BLEOMYCIN SULFATE
     Indication: Pineal neoplasm
     Dosage: UNK UNK, CYCLICAL (3RD CYCLE)
     Route: 065
  18. BLEOMYCIN [Suspect]
     Active Substance: BLEOMYCIN SULFATE
     Indication: Germ cell neoplasm
  19. BLEOMYCIN [Suspect]
     Active Substance: BLEOMYCIN SULFATE
     Indication: Neuroendocrine tumour
  20. BLEOMYCIN [Suspect]
     Active Substance: BLEOMYCIN SULFATE
     Indication: Germ cell cancer

REACTIONS (5)
  - Acute kidney injury [Unknown]
  - Haematotoxicity [Recovered/Resolved]
  - Thrombocytopenia [Recovered/Resolved]
  - Drug ineffective [Unknown]
  - Off label use [Unknown]
